FAERS Safety Report 18607415 (Version 1)
Quarter: 2020Q4

REPORT INFORMATION
  Report Type: Spontaneous
  Country: IT (occurrence: IT)
  Receive Date: 20201211
  Receipt Date: 20201211
  Transmission Date: 20210114
  Serious: Yes (Hospitalization)
  Sender: FDA-Public Use
  Company Number: IT-METUCHEN-STN-2020-0291

PATIENT
  Age: 62 Year
  Sex: Male

DRUGS (3)
  1. SPEDRA (AVANAFIL) TABLETS [Suspect]
     Active Substance: AVANAFIL
     Indication: ERECTILE DYSFUNCTION
     Dosage: 200MG AS NEEDED
     Route: 048
  2. EZETIMIBE. [Concomitant]
     Active Substance: EZETIMIBE
     Indication: TYPE IIA HYPERLIPIDAEMIA
     Dosage: 10MG
  3. PRALUENT [Concomitant]
     Active Substance: ALIROCUMAB
     Indication: TYPE IIA HYPERLIPIDAEMIA
     Dosage: 75MG

REACTIONS (4)
  - Paralysis [Recovered/Resolved]
  - Stupor [Recovered/Resolved]
  - Cerebrovascular accident [Recovered/Resolved]
  - Asthenia [Recovered/Resolved]

NARRATIVE: CASE EVENT DATE: 20200912
